FAERS Safety Report 10456539 (Version 1)
Quarter: 2014Q3

REPORT INFORMATION
  Report Type: Spontaneous
  Country: US (occurrence: None)
  Receive Date: 20140915
  Receipt Date: 20140915
  Transmission Date: 20150326
  Serious: No
  Sender: FDA-Public Use
  Company Number: None

PATIENT
  Age: 60 Year
  Sex: Male
  Weight: 95.26 kg

DRUGS (2)
  1. RITUXAN [Suspect]
     Active Substance: RITUXIMAB
  2. RITUXAN [Suspect]
     Active Substance: RITUXIMAB
     Indication: CHRONIC LYMPHOCYTIC LEUKAEMIA
     Route: 042
     Dates: start: 20140911

REACTIONS (9)
  - Dizziness [None]
  - Chills [None]
  - Nausea [None]
  - Pulse abnormal [None]
  - Feeling cold [None]
  - Hyperhidrosis [None]
  - Blood pressure decreased [None]
  - Erythema [None]
  - Lethargy [None]

NARRATIVE: CASE EVENT DATE: 20140911
